FAERS Safety Report 7547464-2 (Version None)
Quarter: 2011Q2

REPORT INFORMATION
  Report Type: 
  Country: None (occurrence: None)
  Receive Date: 20110614
  Receipt Date: 20110607
  Transmission Date: 20111010
  Serious: Yes (Hospitalization)
  Sender: FDA-Public Use
  Company Number: US-US-EMD SERONO, INC.-7064284

PATIENT
  Sex: Female
  Weight: 95 kg

DRUGS (6)
  1. SYNTHROID [Concomitant]
     Indication: HYPOTHYROIDISM
  2. INSULIN [Concomitant]
     Indication: DIABETES MELLITUS
  3. REBIF [Suspect]
     Route: 058
     Dates: end: 20110501
  4. REBIF [Suspect]
     Indication: MULTIPLE SCLEROSIS
     Route: 058
     Dates: start: 20110324
  5. ACTOPLUS MET [Concomitant]
     Indication: DIABETES MELLITUS
  6. CYMBALTA [Concomitant]
     Indication: DEPRESSION

REACTIONS (6)
  - CONVULSION [None]
  - WHITE BLOOD CELL COUNT DECREASED [None]
  - AMNESIA [None]
  - PLATELET COUNT DECREASED [None]
  - URINARY TRACT INFECTION [None]
  - RASH [None]
